FAERS Safety Report 7730616-6 (Version None)
Quarter: 2011Q3

REPORT INFORMATION
  Report Type: 
  Country: None (occurrence: None)
  Receive Date: 20110901
  Receipt Date: 20110901
  Transmission Date: 20111222
  Serious: Yes (Other)
  Sender: FDA-Public Use
  Company Number: None

PATIENT
  Sex: Female
  Weight: 75.2971 kg

DRUGS (1)
  1. FLUOXETINE [Suspect]
     Indication: AFFECTIVE DISORDER
     Dosage: 40MG ONE DAILY PO
     Route: 048
     Dates: start: 20101104

REACTIONS (4)
  - CRYING [None]
  - DEPRESSED MOOD [None]
  - PRODUCT SUBSTITUTION ISSUE [None]
  - DRUG EFFECT DECREASED [None]
